FAERS Safety Report 7938910-0 (Version None)
Quarter: 2011Q4

REPORT INFORMATION
  Report Type: 
  Country: None (occurrence: None)
  Receive Date: 20111124
  Receipt Date: 20111114
  Transmission Date: 20120403
  Serious: Yes (Other)
  Sender: FDA-Public Use
  Company Number: US-JNJFOC-20111105606

PATIENT
  Sex: Male
  Weight: 85.28 kg

DRUGS (4)
  1. LEVOTHYROXINE SODIUM [Concomitant]
     Indication: THYROID DISORDER
     Route: 048
     Dates: start: 20060101
  2. PURINETHOL [Suspect]
     Indication: NEOPLASM MALIGNANT
     Route: 048
     Dates: start: 20111020
  3. REMICADE [Suspect]
     Route: 042
     Dates: start: 20111103
  4. REMICADE [Suspect]
     Indication: CROHN'S DISEASE
     Route: 042
     Dates: start: 20111020

REACTIONS (21)
  - CHILLS [None]
  - TREMOR [None]
  - MUSCULAR WEAKNESS [None]
  - GAIT DISTURBANCE [None]
  - RASH [None]
  - FATIGUE [None]
  - INCREASED TENDENCY TO BRUISE [None]
  - ARTHRALGIA [None]
  - PAIN IN EXTREMITY [None]
  - VOMITING [None]
  - INSOMNIA [None]
  - WEIGHT DECREASED [None]
  - HYPERHIDROSIS [None]
  - CHANGE OF BOWEL HABIT [None]
  - FEELING ABNORMAL [None]
  - EATING DISORDER [None]
  - POLYDIPSIA [None]
  - HEADACHE [None]
  - DIARRHOEA [None]
  - IMPAIRED WORK ABILITY [None]
  - COUGH [None]
